FAERS Safety Report 15894083 (Version 1)
Quarter: 2019Q1

REPORT INFORMATION
  Report Type: Spontaneous
  Country: FR (occurrence: FR)
  Receive Date: 20190131
  Receipt Date: 20190131
  Transmission Date: 20190417
  Serious: Yes (Life-Threatening)
  Sender: FDA-Public Use
  Company Number: FR-TEVA-2019-FR-1005269

PATIENT
  Age: 80 Year
  Sex: Male

DRUGS (12)
  1. LEXOMIL [Concomitant]
     Active Substance: BROMAZEPAM
     Indication: UNEVALUABLE EVENT
     Route: 065
  2. SEROPLEX [Concomitant]
     Active Substance: ESCITALOPRAM OXALATE
     Indication: PROPHYLACTIC CHEMOTHERAPY
     Dosage: 1 DOSAGE FORMS DAILY;
     Route: 048
  3. PREVISCAN [Concomitant]
     Indication: PROPHYLACTIC CHEMOTHERAPY
     Dosage: 1 DOSAGE FORMS DAILY;
     Route: 048
  4. FUROSEMIDE. [Concomitant]
     Active Substance: FUROSEMIDE
     Indication: UNEVALUABLE EVENT
     Route: 065
  5. CIFLOX [Suspect]
     Active Substance: CIPROFLOXACIN
     Indication: URINARY TRACT INFECTION
     Route: 048
     Dates: start: 20051201, end: 20051205
  6. ARICEPT [Concomitant]
     Active Substance: DONEPEZIL HYDROCHLORIDE
     Indication: UNEVALUABLE EVENT
     Route: 065
  7. AMOXICILLINE [Suspect]
     Active Substance: AMOXICILLIN
     Indication: URINARY TRACT INFECTION
     Dosage: 3 GRAM DAILY;
     Route: 048
     Dates: start: 20051201, end: 20051223
  8. ATENOLOL. [Concomitant]
     Active Substance: ATENOLOL
     Indication: UNEVALUABLE EVENT
     Route: 065
  9. MOPRAL [Concomitant]
     Active Substance: OMEPRAZOLE
     Indication: UNEVALUABLE EVENT
     Route: 065
  10. TARDYFERON [Concomitant]
     Active Substance: FERROUS SULFATE
     Indication: UNEVALUABLE EVENT
     Route: 065
  11. RISPERDAL [Concomitant]
     Active Substance: RISPERIDONE
     Indication: SENILE DEMENTIA
     Dosage: 1.5 MILLIGRAM DAILY; TOTAL DAILY DOSE: 1.5 MG
     Route: 048
  12. MONICOR L.P. [Concomitant]
     Indication: PROPHYLACTIC CHEMOTHERAPY
     Dosage: 1 DOSAGE FORMS DAILY;
     Route: 048

REACTIONS (1)
  - International normalised ratio increased [Recovered/Resolved]

NARRATIVE: CASE EVENT DATE: 20051205
